FAERS Safety Report 6494047-1 (Version None)
Quarter: 2009Q4

REPORT INFORMATION
  Report Type: 
  Country: None (occurrence: None)
  Receive Date: 20091214
  Receipt Date: 20081215
  Transmission Date: 20100525
  Serious: No
  Sender: FDA-Public Use
  Company Number: US-BRISTOL-MYERS SQUIBB COMPANY-14444053

PATIENT
  Age: 7 Year

DRUGS (1)
  1. ABILIFY [Suspect]
     Indication: ATTENTION DEFICIT/HYPERACTIVITY DISORDER

REACTIONS (4)
  - CARDIAC DISORDER [None]
  - EPISTAXIS [None]
  - MUSCLE SPASMS [None]
  - TRISMUS [None]
